FAERS Safety Report 16669498 (Version 2)
Quarter: 2019Q3

REPORT INFORMATION
  Report Type: Report from Study
  Country: ES (occurrence: ES)
  Receive Date: 20190805
  Receipt Date: 20190823
  Transmission Date: 20191004
  Serious: Yes (Hospitalization)
  Sender: FDA-Public Use
  Company Number: ES-MYLANLABS-2019M1072660

PATIENT
  Age: 67 Year
  Sex: Female
  Weight: 55 kg

DRUGS (23)
  1. LETROZOLE. [Suspect]
     Active Substance: LETROZOLE
     Dosage: 2 MG, QD (FOR 27 DAYS)
     Route: 048
     Dates: start: 20180525, end: 20180620
  2. PALBOCICLIB [Suspect]
     Active Substance: PALBOCICLIB
     Dosage: 125 MG, QD (FOR 5 DAYS)
     Route: 048
     Dates: start: 20180427, end: 20180501
  3. TRASTUZUMAB. [Concomitant]
     Active Substance: TRASTUZUMAB
     Dosage: 330 MG, Q3W
     Route: 042
     Dates: start: 20180802
  4. LETROZOLE. [Suspect]
     Active Substance: LETROZOLE
     Dosage: 2 MG, QD (FOR 28 DAYS)
     Route: 048
     Dates: start: 20180427, end: 20180524
  5. LETROZOLE. [Suspect]
     Active Substance: LETROZOLE
     Dosage: 2 MG, QD (FOR 35 DAYS)
     Route: 048
     Dates: start: 20180621, end: 20180725
  6. PALBOCICLIB [Suspect]
     Active Substance: PALBOCICLIB
     Dosage: 125 MILLIGRAM, QD (21 DAYS)
     Route: 048
     Dates: start: 20180525, end: 20180614
  7. PALBOCICLIB [Suspect]
     Active Substance: PALBOCICLIB
     Dosage: 125 MG, QD (FOR 21 DAYS)
     Route: 048
     Dates: start: 20180621, end: 20180711
  8. PALBOCICLIB [Suspect]
     Active Substance: PALBOCICLIB
     Dosage: 100 MG, QD (FOR 21 DAYS)
     Route: 048
     Dates: start: 20180726, end: 20180815
  9. PALBOCICLIB [Suspect]
     Active Substance: PALBOCICLIB
     Dosage: 100 MG, QD (FOR 21 DAYS)
     Route: 048
     Dates: start: 20180823, end: 20180912
  10. TRASTUZUMAB. [Concomitant]
     Active Substance: TRASTUZUMAB
     Dosage: 330 MILLIGRAM, Q3W
     Route: 042
     Dates: start: 20180601
  11. PERTUZUMAB. [Concomitant]
     Active Substance: PERTUZUMAB
     Indication: PRODUCT USED FOR UNKNOWN INDICATION
     Dosage: UNK
     Route: 065
     Dates: start: 20180328
  12. PERTUZUMAB. [Concomitant]
     Active Substance: PERTUZUMAB
     Dosage: 420 MILLIGRAM, Q3W
     Route: 042
     Dates: start: 20180601
  13. PALBOCICLIB [Suspect]
     Active Substance: PALBOCICLIB
     Dosage: 125 MG, QD (FOR 15 DAYS)
     Route: 048
     Dates: start: 20180503, end: 20180517
  14. PALBOCICLIB [Suspect]
     Active Substance: PALBOCICLIB
     Indication: BREAST CANCER METASTATIC
     Dosage: 125 MILLIGRAM, QD
     Route: 048
     Dates: start: 20180328
  15. PERTUZUMAB. [Concomitant]
     Active Substance: PERTUZUMAB
     Dosage: UNK
     Route: 065
     Dates: start: 20180511
  16. PERTUZUMAB. [Concomitant]
     Active Substance: PERTUZUMAB
     Dosage: 420 MG, Q3W
     Route: 042
     Dates: start: 20180802
  17. LETROZOLE. [Suspect]
     Active Substance: LETROZOLE
     Indication: BREAST CANCER METASTATIC
     Dosage: 2 MILLIGRAM, QD
     Route: 048
     Dates: start: 20180328
  18. LETROZOLE. [Suspect]
     Active Substance: LETROZOLE
     Dosage: 2 MILLIGRAM, QD
     Route: 048
     Dates: start: 20180726
  19. LETROZOLE. [Suspect]
     Active Substance: LETROZOLE
     Dosage: 2 MILLIGRAM, QD
     Route: 048
     Dates: start: 20180815
  20. TRASTUZUMAB. [Concomitant]
     Active Substance: TRASTUZUMAB
     Dosage: UNK
     Route: 065
     Dates: start: 20180511
  21. TRASTUZUMAB. [Concomitant]
     Active Substance: TRASTUZUMAB
     Indication: PRODUCT USED FOR UNKNOWN INDICATION
     Dosage: UNK
     Route: 065
     Dates: start: 20180328
  22. TRASTUZUMAB. [Concomitant]
     Active Substance: TRASTUZUMAB
     Dosage: UNK
     Route: 065
     Dates: start: 20180621, end: 20180712
  23. PERTUZUMAB. [Concomitant]
     Active Substance: PERTUZUMAB
     Dosage: UNK
     Route: 065
     Dates: start: 20180612, end: 20180721

REACTIONS (4)
  - Urinary tract infection [Recovered/Resolved]
  - Red blood cells urine positive [Unknown]
  - Pyrexia [Unknown]
  - White blood cells urine positive [Unknown]

NARRATIVE: CASE EVENT DATE: 20180518
